FAERS Safety Report 7441832-5 (Version None)
Quarter: 2011Q2

REPORT INFORMATION
  Report Type: 
  Country: None (occurrence: None)
  Receive Date: 20110428
  Receipt Date: 20110420
  Transmission Date: 20111010
  Serious: Yes (Hospitalization)
  Sender: FDA-Public Use
  Company Number: US-B.I. PHARMACEUTICALS,INC./RIDGEFIELD-2011-BP-08642BP

PATIENT
  Age: 91 Year
  Sex: Female

DRUGS (20)
  1. FLUTICOSONE [Concomitant]
  2. OMEPRAZOLE CR [Concomitant]
  3. PROMETHAZINE [Concomitant]
  4. CYMBALTA [Concomitant]
  5. SPIRIVA [Concomitant]
  6. SYSTANE [Concomitant]
  7. FUROSEMIDE [Concomitant]
  8. AMITRIPTYLINE [Concomitant]
  9. 1 A DAY VITAMIN [Concomitant]
  10. ZANTAC 150 [Suspect]
     Dosage: 150 MG
     Route: 048
     Dates: start: 20110316, end: 20110316
  11. LEVOTHYROIXINE [Concomitant]
  12. BENEZEPRIL [Concomitant]
  13. TRAMADOL [Concomitant]
  14. ACETAMINOPHEN [Concomitant]
  15. CARAFATE [Concomitant]
  16. XOPENEX [Concomitant]
  17. SINGULAIR [Concomitant]
  18. OXYBUTYNIN [Concomitant]
  19. ROPINIROLE [Concomitant]
  20. PANTOPRAZOLE [Concomitant]

REACTIONS (4)
  - BURNING SENSATION [None]
  - CHEST PAIN [None]
  - PAIN IN EXTREMITY [None]
  - ABDOMINAL PAIN UPPER [None]
